FAERS Safety Report 14133683 (Version 4)
Quarter: 2018Q4

REPORT INFORMATION
  Report Type: Report from Study
  Country: CR (occurrence: CR)
  Receive Date: 20171026
  Receipt Date: 20181119
  Transmission Date: 20190204
  Serious: Yes (Other)
  Sender: FDA-Public Use
  Company Number: PHHY2016CR178422

PATIENT
  Age: 49 Year
  Sex: Female
  Weight: 62 kg

DRUGS (6)
  1. GILENYA [Suspect]
     Active Substance: FINGOLIMOD HYDROCHLORIDE
     Dosage: UNK
     Route: 048
     Dates: start: 20170808
  2. GILENYA [Suspect]
     Active Substance: FINGOLIMOD HYDROCHLORIDE
     Dosage: UNK
     Route: 048
     Dates: start: 20171019
  3. ATENOLOL. [Concomitant]
     Active Substance: ATENOLOL
     Indication: HYPERTENSION
     Dosage: 50 MG, QD
     Route: 048
  4. GILENYA [Suspect]
     Active Substance: FINGOLIMOD HYDROCHLORIDE
     Indication: MULTIPLE SCLEROSIS
     Dosage: 0.5 MG, QD
     Route: 048
     Dates: start: 20161222
  5. SIRDALUD [Concomitant]
     Active Substance: TIZANIDINE
     Indication: PRODUCT USED FOR UNKNOWN INDICATION
     Route: 065
  6. FAMOTIDINE. [Concomitant]
     Active Substance: FAMOTIDINE
     Indication: PRODUCT USED FOR UNKNOWN INDICATION
     Dosage: 1 DF, BID
     Route: 048

REACTIONS (38)
  - Multiple sclerosis relapse [Recovered/Resolved with Sequelae]
  - Urinary tract infection [Recovered/Resolved]
  - Arthralgia [Recovered/Resolved]
  - Amnesia [Recovering/Resolving]
  - Chest discomfort [Recovered/Resolved]
  - Limb discomfort [Unknown]
  - Multiple sclerosis relapse [Unknown]
  - Somnolence [Unknown]
  - Dyspnoea [Unknown]
  - Restless legs syndrome [Unknown]
  - Dysstasia [Unknown]
  - Pain [Unknown]
  - Heart rate decreased [Unknown]
  - Dizziness [Not Recovered/Not Resolved]
  - Limb discomfort [Recovered/Resolved]
  - Abdominal pain lower [Recovered/Resolved]
  - Chromaturia [Recovered/Resolved]
  - Hypokinesia [Recovering/Resolving]
  - Vomiting [Recovered/Resolved]
  - Gait disturbance [Unknown]
  - Muscular weakness [Not Recovered/Not Resolved]
  - Muscle rigidity [Recovered/Resolved]
  - Nasal congestion [Unknown]
  - Nausea [Not Recovered/Not Resolved]
  - Influenza [Recovered/Resolved]
  - Diplegia [Recovered/Resolved with Sequelae]
  - Monoplegia [Recovering/Resolving]
  - Dysuria [Recovered/Resolved]
  - Musculoskeletal stiffness [Recovered/Resolved]
  - Mental disorder [Recovering/Resolving]
  - Depressive symptom [Unknown]
  - Fear [Recovering/Resolving]
  - Discomfort [Unknown]
  - Kidney infection [Unknown]
  - Pain in extremity [Recovered/Resolved]
  - Stress [Unknown]
  - Productive cough [Recovered/Resolved]
  - Headache [Not Recovered/Not Resolved]

NARRATIVE: CASE EVENT DATE: 2017
